FAERS Safety Report 9458090 (Version 1)
Quarter: 2013Q3

REPORT INFORMATION
  Report Type: Spontaneous
  Country: US (occurrence: None)
  Receive Date: 20130812
  Receipt Date: 20130812
  Transmission Date: 20140515
  Serious: Yes (Other)
  Sender: FDA-Public Use
  Company Number: None

PATIENT
  Age: 54 Year
  Sex: Male

DRUGS (1)
  1. ENBREL 50 MG AMGEN [Suspect]
     Indication: PSORIASIS
     Dates: start: 20130619

REACTIONS (4)
  - Dizziness [None]
  - Hypoaesthesia [None]
  - Diarrhoea [None]
  - Dyspnoea [None]
